FAERS Safety Report 7883165-9 (Version None)
Quarter: 2011Q4

REPORT INFORMATION
  Report Type: 
  Country: None (occurrence: None)
  Receive Date: 20111101
  Receipt Date: 20111101
  Transmission Date: 20120403
  Serious: Yes (Hospitalization)
  Sender: FDA-Public Use
  Company Number: None

PATIENT
  Sex: Male
  Weight: 99 kg

DRUGS (5)
  1. VINCRISTINE SULFATE [Suspect]
     Dosage: 2 MG
  2. CYCLOPHOSPHAMIDE [Suspect]
     Dosage: 1680 MG
  3. DOXORUBICIN HCL [Suspect]
     Dosage: 112 MG
  4. PREDNISONE [Suspect]
     Dosage: 500 MG
  5. RITUXIMAB (MOAB C2B8 ANTI CD20,CHIMERIC) [Suspect]
     Dosage: 840 MG

REACTIONS (4)
  - GASTROSPLENIC FISTULA [None]
  - PULMONARY EMBOLISM [None]
  - TUMOUR NECROSIS [None]
  - BENIGN SPLEEN TUMOUR [None]
